FAERS Safety Report 14128944 (Version 2)
Quarter: 2017Q4

REPORT INFORMATION
  Report Type: Spontaneous
  Country: US (occurrence: US)
  Receive Date: 20171026
  Receipt Date: 20171130
  Transmission Date: 20180321
  Serious: Yes (Hospitalization)
  Sender: FDA-Public Use
  Company Number: US-009507513-1710USA013182

PATIENT
  Age: 88 Year
  Sex: Female

DRUGS (1)
  1. KEYTRUDA [Suspect]
     Active Substance: PEMBROLIZUMAB
     Dosage: 200 MG, Q3W
     Route: 042

REACTIONS (2)
  - Temporal arteritis [Unknown]
  - Colitis [Unknown]
